FAERS Safety Report 9901208 (Version 1)
Quarter: 2014Q1

REPORT INFORMATION
  Report Type: Spontaneous
  Country: JP (occurrence: JP)
  Receive Date: 20140217
  Receipt Date: 20140217
  Transmission Date: 20141002
  Serious: Yes (Other)
  Sender: FDA-Public Use
  Company Number: US-ASTRAZENECA-2014SE10840

PATIENT
  Age: 75 Year
  Sex: Female

DRUGS (1)
  1. BLOPRESS [Suspect]
     Dosage: UNK
     Route: 048
     Dates: start: 201202, end: 201203

REACTIONS (1)
  - Drug-induced liver injury [Unknown]
